FAERS Safety Report 5992523-9 (Version None)
Quarter: 2008Q4

REPORT INFORMATION
  Report Type: 
  Country: None (occurrence: None)
  Receive Date: 20081202
  Receipt Date: 20080131
  Transmission Date: 20090506
  Serious: Yes (Other)
  Sender: FDA-Public Use
  Company Number: WAES 0708USA03338

PATIENT
  Age: 47 Year
  Sex: Female

DRUGS (2)
  1. FOSAMAX [Suspect]
     Indication: OSTEOPENIA
     Dosage: 10 MG/PO
     Route: 048
     Dates: start: 20010601, end: 20030601
  2. CALCIUM (UNSPECIFIED) (+) VITAMI [Concomitant]

REACTIONS (8)
  - CANDIDIASIS [None]
  - DENTAL CARIES [None]
  - FUNGAL SKIN INFECTION [None]
  - GINGIVAL ABSCESS [None]
  - OSTEOMYELITIS [None]
  - OSTEONECROSIS [None]
  - PAIN [None]
  - TOOTHACHE [None]
